FAERS Safety Report 7371955-0 (Version None)
Quarter: 2011Q1

REPORT INFORMATION
  Report Type: 
  Country: None (occurrence: None)
  Receive Date: 20110314
  Receipt Date: 20110307
  Transmission Date: 20110831
  Serious: Yes (Hospitalization)
  Sender: FDA-Public Use
  Company Number: 2009SP023611

PATIENT
  Age: 19 Year
  Sex: Female
  Weight: 54.4316 kg

DRUGS (1)
  1. NUVARING [Suspect]
     Indication: CONTRACEPTION
     Dates: start: 20050801, end: 20070901

REACTIONS (8)
  - DEEP VEIN THROMBOSIS [None]
  - COGNITIVE DISORDER [None]
  - ANXIETY [None]
  - MENTAL DISORDER [None]
  - VARICOSE VEIN [None]
  - EMOTIONAL DISORDER [None]
  - INJURY [None]
  - DYSPNOEA [None]
